FAERS Safety Report 26098101 (Version 1)
Quarter: 2025Q4

REPORT INFORMATION
  Report Type: Spontaneous
  Country: IN (occurrence: IN)
  Receive Date: 20251127
  Receipt Date: 20251127
  Transmission Date: 20260118
  Serious: Yes (Other)
  Sender: NOVARTIS
  Company Number: IN-002147023-NVSC2025IN180600

PATIENT
  Sex: Female

DRUGS (1)
  1. RIBOCICLIB [Suspect]
     Active Substance: RIBOCICLIB
     Indication: Breast cancer metastatic
     Dosage: 600 MG, QD
     Route: 048

REACTIONS (6)
  - Invasive ductal breast carcinoma [Unknown]
  - Metastases to lung [Unknown]
  - Metastases to pleura [Unknown]
  - Metastases to bone [Unknown]
  - Metastatic lymphoma [Unknown]
  - Neoplasm recurrence [Unknown]
